FAERS Safety Report 11371921 (Version 3)
Quarter: 2015Q3

REPORT INFORMATION
  Report Type: Spontaneous
  Country: JP (occurrence: JP)
  Receive Date: 20150812
  Receipt Date: 20150918
  Transmission Date: 20151125
  Serious: Yes (Hospitalization, Other)
  Sender: FDA-Public Use
  Company Number: JP-GILEAD-2015-0167362

PATIENT
  Age: 61 Year
  Sex: Female

DRUGS (9)
  1. HEPSERA [Suspect]
     Active Substance: ADEFOVIR DIPIVOXIL
     Dosage: 10 MG, QOD
     Route: 048
     Dates: start: 20070712, end: 20150507
  2. VIREAD [Suspect]
     Active Substance: TENOFOVIR DISOPROXIL FUMARATE
     Dosage: 300 UNK, UNK
     Route: 048
     Dates: start: 20150605, end: 20150716
  3. ZEFIX [Concomitant]
     Active Substance: LAMIVUDINE
     Dosage: 1 DF, QOD
     Dates: start: 20070712, end: 20150507
  4. VIREAD [Suspect]
     Active Substance: TENOFOVIR DISOPROXIL FUMARATE
     Dosage: 300 MG, Q3DAYS
     Route: 048
  5. ZEFIX [Concomitant]
     Active Substance: LAMIVUDINE
     Indication: CHRONIC HEPATITIS B
     Dosage: 1 DF, QD
     Dates: start: 20040302, end: 20070711
  6. VIREAD [Suspect]
     Active Substance: TENOFOVIR DISOPROXIL FUMARATE
     Dosage: 300 UNK, UNK
     Route: 048
     Dates: start: 20150717
  7. OLMETEC [Concomitant]
     Active Substance: OLMESARTAN MEDOXOMIL
     Dosage: UNK
  8. HEPSERA [Suspect]
     Active Substance: ADEFOVIR DIPIVOXIL
     Indication: CHRONIC HEPATITIS B
     Dosage: 10 MG, 1D
     Route: 048
     Dates: start: 20051129, end: 20070711
  9. VIREAD [Suspect]
     Active Substance: TENOFOVIR DISOPROXIL FUMARATE
     Indication: CHRONIC HEPATITIS B
     Dosage: 300 MG, QOD
     Route: 048
     Dates: start: 20150508, end: 20150604

REACTIONS (5)
  - Fanconi syndrome acquired [Recovering/Resolving]
  - Hypophosphataemia [Recovering/Resolving]
  - Blood creatinine increased [Recovering/Resolving]
  - Dehydration [Recovering/Resolving]
  - Hyperphosphatasaemia [Recovered/Resolved]

NARRATIVE: CASE EVENT DATE: 20070111
